FAERS Safety Report 18213576 (Version 10)
Quarter: 2024Q1

REPORT INFORMATION
  Report Type: Spontaneous
  Country: US (occurrence: US)
  Receive Date: 20200831
  Receipt Date: 20240304
  Transmission Date: 20240409
  Serious: Yes (Other)
  Sender: FDA-Public Use
  Company Number: US-PFIZER INC-2020334196

PATIENT
  Age: 81 Year
  Sex: Male
  Weight: 88.435 kg

DRUGS (6)
  1. BRAFTOVI [Suspect]
     Active Substance: ENCORAFENIB
     Indication: Malignant melanoma
     Dosage: 450 MG, 1X/DAY
     Route: 048
     Dates: start: 20200723, end: 20210121
  2. BRAFTOVI [Suspect]
     Active Substance: ENCORAFENIB
     Indication: Metastases to lung
     Dosage: 450 MG, DAILY
     Route: 048
     Dates: start: 20220829
  3. BRAFTOVI [Suspect]
     Active Substance: ENCORAFENIB
     Dosage: 450 MG, DAILY
     Route: 048
  4. MEKTOVI [Suspect]
     Active Substance: BINIMETINIB
     Indication: Malignant melanoma
     Dosage: 45 MG, 2X/DAY
     Route: 048
     Dates: start: 20200723, end: 20210121
  5. MEKTOVI [Suspect]
     Active Substance: BINIMETINIB
     Indication: Metastases to lung
     Dosage: 45 MG, 2X/DAY
     Route: 048
     Dates: start: 20220829
  6. MEKTOVI [Suspect]
     Active Substance: BINIMETINIB
     Dosage: 45 MG, 2X/DAY
     Route: 048

REACTIONS (18)
  - Sarcoidosis [Unknown]
  - Vomiting [Unknown]
  - Colitis [Unknown]
  - Fatigue [Unknown]
  - Oedema peripheral [Unknown]
  - Hypophagia [Unknown]
  - Muscular weakness [Unknown]
  - Skin lesion [Unknown]
  - Condition aggravated [Unknown]
  - Nodule [Unknown]
  - Breast mass [Unknown]
  - Anxiety [Unknown]
  - Asthenia [Unknown]
  - Decreased appetite [Unknown]
  - Hyponatraemia [Unknown]
  - Weight decreased [Unknown]
  - Bone pain [Unknown]
  - Neoplasm progression [Unknown]

NARRATIVE: CASE EVENT DATE: 20230324
